FAERS Safety Report 18695375 (Version 1)
Quarter: 2021Q1

REPORT INFORMATION
  Report Type: Spontaneous
  Country: US (occurrence: US)
  Receive Date: 20210103
  Receipt Date: 20210103
  Transmission Date: 20210419
  Serious: Yes (Disabling)
  Sender: FDA-Public Use
  Company Number: None

PATIENT
  Age: 61 Year
  Sex: Female
  Weight: 54.9 kg

DRUGS (4)
  1. TIMOLOL. [Concomitant]
     Active Substance: TIMOLOL
  2. ZOMIG [Concomitant]
     Active Substance: ZOLMITRIPTAN
  3. VYZULTA [Concomitant]
     Active Substance: LATANOPROSTENE BUNOD
  4. SUMATRIPTAN SUCCINATE TABLET, 100 MG (BASE) [Suspect]
     Active Substance: SUMATRIPTAN SUCCINATE
     Indication: MIGRAINE
     Dosage: ?          QUANTITY:1 TABLET(S);OTHER FREQUENCY:AS NEEDED;?
     Route: 048

REACTIONS (2)
  - Myalgia [None]
  - Asthenia [None]

NARRATIVE: CASE EVENT DATE: 20201217
